FAERS Safety Report 9874235 (Version 1)
Quarter: 2014Q1

REPORT INFORMATION
  Report Type: Other
  Country: US (occurrence: US)
  Receive Date: 20140206
  Receipt Date: 20140206
  Transmission Date: 20141002
  Serious: No
  Sender: FDA-Public Use
  Company Number: US-ACORDA-ACO_34987_2013

PATIENT
  Sex: 0

DRUGS (1)
  1. AMPYRA [Suspect]
     Indication: GAIT DISTURBANCE
     Dosage: 10 MG, BID
     Route: 048
     Dates: start: 201212, end: 201302

REACTIONS (3)
  - Headache [Recovered/Resolved]
  - Dizziness [Recovering/Resolving]
  - Balance disorder [Recovering/Resolving]
